FAERS Safety Report 7222427-5 (Version None)
Quarter: 2011Q1

REPORT INFORMATION
  Report Type: 
  Country: None (occurrence: None)
  Receive Date: 20110103
  Receipt Date: 20101223
  Transmission Date: 20110831
  Serious: Yes (Other)
  Sender: FDA-Public Use
  Company Number: 2010SP066164

PATIENT
  Age: 46 Year
  Sex: Male

DRUGS (2)
  1. REBETOL [Suspect]
     Indication: HEPATITIS C
     Dosage: 1600 MG QD; PO
     Route: 048
     Dates: start: 20070126
  2. PEG-INTERFERON (PEGINTERFERON ALFA-2B /01543001/) [Suspect]
     Indication: HEPATITIS C
     Dosage: SC
     Route: 058
     Dates: start: 20070126

REACTIONS (4)
  - RASH [None]
  - PHOTOSENSITIVITY REACTION [None]
  - PORPHYRIA NON-ACUTE [None]
  - BLOOD IRON INCREASED [None]
